FAERS Safety Report 8100177-0 (Version None)
Quarter: 2012Q1

REPORT INFORMATION
  Report Type: 
  Country: None (occurrence: None)
  Receive Date: 20120129
  Receipt Date: 20111117
  Transmission Date: 20120608
  Serious: No
  Sender: FDA-Public Use
  Company Number: US-ABBOTT-11P-163-0848504-00

PATIENT
  Sex: Female

DRUGS (5)
  1. LIPITOR [Concomitant]
     Indication: BLOOD CHOLESTEROL INCREASED
     Route: 048
  2. HUMIRA [Suspect]
     Indication: PSORIATIC ARTHROPATHY
     Route: 058
     Dates: start: 20110309
  3. VITAMIN TAB [Concomitant]
     Indication: VITAMIN SUPPLEMENTATION
  4. BIRTH CONTROL PILLS [Concomitant]
     Indication: CONTRACEPTION
  5. RELAFEN [Concomitant]
     Indication: PSORIATIC ARTHROPATHY

REACTIONS (5)
  - INJECTION SITE PAIN [None]
  - MUSCULAR WEAKNESS [None]
  - NAUSEA [None]
  - OEDEMA PERIPHERAL [None]
  - DEVICE MALFUNCTION [None]
